FAERS Safety Report 8298211 (Version 2)
Quarter: 2012Q4

REPORT INFORMATION
  Report Type: 
  Country: US (occurrence: US)
  Receive Date: 20111219
  Receipt Date: 20121026
  Transmission Date: 20130627
  Serious: No
  Sender: FDA-Public Use
  Company Number: US-ASTRAZENECA-2011SE59938

PATIENT
  Age: 62 Year
  Sex: Female
  Weight: 83.9 kg

DRUGS (1)
  1. CRESTOR [Suspect]
     Route: 048

REACTIONS (5)
  - Back pain [Recovered/Resolved]
  - Local swelling [Unknown]
  - Urine output increased [Unknown]
  - Adverse drug reaction [Unknown]
  - Nocturia [Unknown]
